FAERS Safety Report 12343569 (Version 1)
Quarter: 2016Q2

REPORT INFORMATION
  Report Type: Report from Study
  Country: US (occurrence: US)
  Receive Date: 20160506
  Receipt Date: 20160506
  Transmission Date: 20160815
  Serious: Yes (Hospitalization)
  Sender: FDA-Public Use
  Company Number: US-VALIDUS PHARMACEUTICALS LLC-US-2016VAL000411

PATIENT

DRUGS (14)
  1. BROMOCRIPTINE [Suspect]
     Active Substance: BROMOCRIPTINE
     Indication: PRODUCT USED FOR UNKNOWN INDICATION
     Dosage: 5 MG, BID
  2. ELIQUIS [Suspect]
     Active Substance: APIXABAN
     Indication: PRODUCT USED FOR UNKNOWN INDICATION
     Dosage: 5 MG, BID
  3. ASPIRIN. [Suspect]
     Active Substance: ASPIRIN
     Indication: PRODUCT USED FOR UNKNOWN INDICATION
     Dosage: 81 MG, QD
  4. SIMVASTATIN. [Suspect]
     Active Substance: SIMVASTATIN
     Indication: PRODUCT USED FOR UNKNOWN INDICATION
     Dosage: 20 MG, QD, PM
  5. ZIPRASIDONE. [Suspect]
     Active Substance: ZIPRASIDONE
     Indication: PRODUCT USED FOR UNKNOWN INDICATION
     Dosage: 20 MG, QD
  6. ENALAPRIL MALEATE. [Suspect]
     Active Substance: ENALAPRIL MALEATE
     Indication: PRODUCT USED FOR UNKNOWN INDICATION
     Dosage: 20 MG, BID
  7. ACTOPLUS MET [Suspect]
     Active Substance: METFORMIN HYDROCHLORIDE\PIOGLITAZONE HYDROCHLORIDE
     Indication: PRODUCT USED FOR UNKNOWN INDICATION
     Dosage: UNK
  8. DEPAKOTE [Suspect]
     Active Substance: DIVALPROEX SODIUM
     Indication: PRODUCT USED FOR UNKNOWN INDICATION
     Dosage: 500 MG, QID (2 IN THE MORNING AND 2 AT NIGHT)
  9. THIOTHIXENE /00099101/ [Suspect]
     Active Substance: THIOTHIXENE
     Indication: PRODUCT USED FOR UNKNOWN INDICATION
     Dosage: UNK, QD
  10. LORAZEPAM. [Concomitant]
     Active Substance: LORAZEPAM
     Indication: ANXIETY
     Dosage: 1 MG, BID, PRN
  11. ONGLYZA [Suspect]
     Active Substance: SAXAGLIPTIN HYDROCHLORIDE
     Indication: PRODUCT USED FOR UNKNOWN INDICATION
     Dosage: 5 MG, QD
  12. METOPROLOL TARTRATE. [Suspect]
     Active Substance: METOPROLOL TARTRATE
     Indication: PRODUCT USED FOR UNKNOWN INDICATION
     Dosage: 50 MG, BID
  13. OMEGA 3 ACID ETHYL ESTERS [Suspect]
     Active Substance: OMEGA-3-ACID ETHYL ESTERS
     Indication: PRODUCT USED FOR UNKNOWN INDICATION
     Dosage: 2 G, BID
     Route: 048
  14. LITHIUM. [Suspect]
     Active Substance: LITHIUM
     Indication: PRODUCT USED FOR UNKNOWN INDICATION
     Dosage: UNK

REACTIONS (5)
  - Weight decreased [Recovering/Resolving]
  - Weight increased [Recovering/Resolving]
  - Atrial fibrillation [Unknown]
  - Pneumonia [Unknown]
  - Peripheral swelling [Unknown]
